FAERS Safety Report 15128970 (Version 1)
Quarter: 2018Q3

REPORT INFORMATION
  Report Type: Spontaneous
  Country: IT (occurrence: IT)
  Receive Date: 20180711
  Receipt Date: 20180711
  Transmission Date: 20181010
  Serious: Yes (Hospitalization)
  Sender: FDA-Public Use
  Company Number: IT-BRISTOL-MYERS SQUIBB COMPANY-BMS-2018-060826

PATIENT
  Age: 72 Year
  Sex: Female

DRUGS (1)
  1. WARFARIN SODIUM. [Suspect]
     Active Substance: WARFARIN SODIUM
     Indication: CARDIAC VALVE PROSTHESIS USER
     Dosage: 5 MG, UNK
     Route: 048
     Dates: start: 20090112

REACTIONS (1)
  - Gastric neoplasm [Recovered/Resolved with Sequelae]

NARRATIVE: CASE EVENT DATE: 20180223
